FAERS Safety Report 7509009-2 (Version None)
Quarter: 2011Q2

REPORT INFORMATION
  Report Type: 
  Country: None (occurrence: None)
  Receive Date: 20110527
  Receipt Date: 20110523
  Transmission Date: 20111010
  Serious: Yes (Hospitalization)
  Sender: FDA-Public Use
  Company Number: JP-ALLERGAN-1008699US

PATIENT
  Age: 55 Year
  Sex: Male
  Weight: 40 kg

DRUGS (8)
  1. INDERAL [Concomitant]
     Indication: TORTICOLLIS
     Dosage: 30 MG, QD
     Route: 048
     Dates: start: 20070522, end: 20070731
  2. ARTANE [Concomitant]
     Indication: TORTICOLLIS
     Dosage: 4 MG, QD
     Route: 048
     Dates: start: 20070522, end: 20070731
  3. EC-DOPARL [Concomitant]
     Indication: TORTICOLLIS
     Dosage: 150 MG, QD
     Route: 048
     Dates: start: 20070522, end: 20070731
  4. BOTOX [Suspect]
     Dosage: 40 UNK, UNK
     Route: 030
     Dates: start: 20080328, end: 20080328
  5. DIAZEPAM [Concomitant]
     Indication: TORTICOLLIS
     Dosage: 6 MG, QD
     Route: 048
     Dates: start: 20070522, end: 20070731
  6. BOTOX [Suspect]
     Dosage: 99 UNITS, SINGLE
     Route: 030
     Dates: start: 20070608, end: 20070608
  7. BOTOX [Suspect]
     Indication: TORTICOLLIS
     Dosage: 150 UNITS, SINGLE
     Route: 030
     Dates: start: 20070706, end: 20070706
  8. AMITRIPTYLINE HCL [Concomitant]
     Indication: TORTICOLLIS
     Dosage: 30 MG, QD
     Route: 048
     Dates: start: 20070522, end: 20070731

REACTIONS (1)
  - PNEUMONIA ASPIRATION [None]
